FAERS Safety Report 6314614-5 (Version None)
Quarter: 2009Q3

REPORT INFORMATION
  Report Type: 
  Country: None (occurrence: None)
  Receive Date: 20090817
  Receipt Date: 20090817
  Transmission Date: 20100115
  Serious: Yes (Hospitalization)
  Sender: FDA-Public Use
  Company Number: None

PATIENT
  Sex: Female
  Weight: 60 kg

DRUGS (2)
  1. CETUXIMAB [Suspect]
     Indication: NON-SMALL CELL LUNG CANCER
     Dosage: 200 MG/M2 ONCE A WEEK IV
     Route: 042
     Dates: start: 20090612
  2. TARCEVA [Suspect]
     Indication: NON-SMALL CELL LUNG CANCER
     Dosage: 150 EVERY DAY P.O.
     Route: 048
     Dates: start: 20090612

REACTIONS (4)
  - ARTHRALGIA [None]
  - DIZZINESS [None]
  - FALL [None]
  - HIP FRACTURE [None]
